FAERS Safety Report 15600683 (Version 2)
Quarter: 2019Q1

REPORT INFORMATION
  Report Type: Spontaneous
  Country: IT (occurrence: IT)
  Receive Date: 20181109
  Receipt Date: 20190201
  Transmission Date: 20190417
  Serious: Yes (Disabling)
  Sender: FDA-Public Use
  Company Number: IT-AUROBINDO-AUR-APL-2018-054090

PATIENT
  Age: 29 Year
  Sex: Male
  Weight: 74 kg

DRUGS (1)
  1. FINASTERIDE FILM-COATED TABLETS [Suspect]
     Active Substance: FINASTERIDE
     Indication: ALOPECIA
     Dosage: 1 MILLIGRAM, ONCE A DAY
     Route: 048
     Dates: start: 20071010, end: 20150111

REACTIONS (7)
  - Lymphopenia [Recovering/Resolving]
  - Asthenia [Recovering/Resolving]
  - Abdominal discomfort [Recovering/Resolving]
  - Erectile dysfunction [Recovering/Resolving]
  - Lactose intolerance [Recovering/Resolving]
  - Gluten sensitivity [Recovering/Resolving]
  - Weight decreased [Recovering/Resolving]

NARRATIVE: CASE EVENT DATE: 20150212
